FAERS Safety Report 20567075 (Version 1)
Quarter: 2022Q1

REPORT INFORMATION
  Report Type: Spontaneous
  Country: CA (occurrence: CA)
  Receive Date: 20220308
  Receipt Date: 20220308
  Transmission Date: 20220423
  Serious: Yes (Hospitalization, Other)
  Sender: FDA-Public Use
  Company Number: CA-TEVA-2022-CA-2013063

PATIENT
  Age: 56 Year
  Sex: Female

DRUGS (11)
  1. SILDENAFIL CITRATE [Suspect]
     Active Substance: SILDENAFIL CITRATE
     Indication: Pulmonary arterial hypertension
     Dosage: 60 MILLIGRAM DAILY;
     Route: 048
  2. BUDESONIDE\FORMOTEROL FUMARATE [Concomitant]
     Active Substance: BUDESONIDE\FORMOTEROL FUMARATE
  3. CANDESARTAN [Concomitant]
     Active Substance: CANDESARTAN
  4. LASIX [Concomitant]
     Active Substance: FUROSEMIDE
  5. PANTOPRAZOLE [Concomitant]
     Active Substance: PANTOPRAZOLE
  6. POTASSIUM CHLORIDE [Concomitant]
     Active Substance: POTASSIUM CHLORIDE
  7. PREDNISONE [Concomitant]
     Active Substance: PREDNISONE
  8. TACROLIMUS [Concomitant]
     Active Substance: TACROLIMUS
  9. TERBINAFINE [Concomitant]
     Active Substance: TERBINAFINE
  10. VENTOLIN [Concomitant]
     Active Substance: ALBUTEROL SULFATE
  11. WARFARIN [Concomitant]
     Active Substance: WARFARIN

REACTIONS (5)
  - Disease progression [Unknown]
  - Dyspnoea [Unknown]
  - Oedema [Unknown]
  - Right ventricular failure [Unknown]
  - Off label use [Unknown]
